FAERS Safety Report 5994775-8 (Version None)
Quarter: 2008Q4

REPORT INFORMATION
  Report Type: 
  Country: None (occurrence: None)
  Receive Date: 20081212
  Receipt Date: 20080912
  Transmission Date: 20090506
  Serious: No
  Sender: FDA-Public Use
  Company Number: US-ABBOTT-08P-163-0476204-00

PATIENT
  Sex: Male
  Weight: 77.18 kg

DRUGS (4)
  1. HUMIRA [Suspect]
     Indication: CROHN'S DISEASE
     Dosage: LOADING DOSE
     Route: 058
     Dates: start: 20071101, end: 20071101
  2. HUMIRA [Suspect]
     Route: 058
  3. HUMIRA [Suspect]
     Route: 058
     Dates: end: 20080801
  4. HUMIRA [Suspect]
     Route: 058
     Dates: start: 20080801

REACTIONS (6)
  - ACCIDENTAL OVERDOSE [None]
  - EYE SWELLING [None]
  - FATIGUE [None]
  - JOINT STIFFNESS [None]
  - PARAESTHESIA [None]
  - PHARYNGEAL OEDEMA [None]
